FAERS Safety Report 4818018-3 (Version None)
Quarter: 2005Q4

REPORT INFORMATION
  Report Type: 
  Country: None (occurrence: None)
  Receive Date: 20051102
  Receipt Date: 20051024
  Transmission Date: 20060501
  Serious: Yes (Other)
  Sender: FDA-Public Use
  Company Number: 2005PK01985

PATIENT
  Age: 28100 Day
  Sex: Female
  Weight: 82 kg

DRUGS (1)
  1. ATACAND [Suspect]
     Indication: HYPERTENSION

REACTIONS (4)
  - CONDITION AGGRAVATED [None]
  - HEARING IMPAIRED [None]
  - MIDDLE EAR EFFUSION [None]
  - OTITIS MEDIA [None]
